FAERS Safety Report 22285217 (Version 6)
Quarter: 2023Q2

REPORT INFORMATION
  Report Type: Spontaneous
  Country: US (occurrence: US)
  Receive Date: 20230504
  Receipt Date: 20230606
  Transmission Date: 20230721
  Serious: No
  Sender: FDA-Public Use
  Company Number: US-PFIZER INC-202300175979

PATIENT
  Age: 71 Year
  Sex: Female
  Weight: 53.061 kg

DRUGS (2)
  1. PAXLOVID [Suspect]
     Active Substance: NIRMATRELVIR\RITONAVIR
     Indication: COVID-19 treatment
     Dosage: PF-07321332 300 MG/ RITONAVIR 100 MG; 2X/DAY
     Route: 048
     Dates: start: 20230418, end: 20230423
  2. CELECOXIB [Concomitant]
     Active Substance: CELECOXIB
     Indication: Fibromyalgia
     Dosage: UNK (STARTED 10 YEARS AGO)
     Route: 048
     Dates: start: 2013

REACTIONS (4)
  - COVID-19 [Recovered/Resolved]
  - Disease recurrence [Recovered/Resolved]
  - Abdominal discomfort [Unknown]
  - Inappropriate schedule of product administration [Unknown]

NARRATIVE: CASE EVENT DATE: 20230401
